FAERS Safety Report 16922518 (Version 1)
Quarter: 2019Q4

REPORT INFORMATION
  Report Type: Spontaneous
  Country: CA (occurrence: CA)
  Receive Date: 20191016
  Receipt Date: 20191016
  Transmission Date: 20200122
  Serious: Yes (Other)
  Sender: FDA-Public Use
  Company Number: CA-TEVA-2019-CA-1118040

PATIENT
  Sex: Female

DRUGS (4)
  1. ADVIL [Suspect]
     Active Substance: IBUPROFEN
     Indication: PYREXIA
     Dates: start: 2019
  2. TYLENOL [Concomitant]
     Active Substance: ACETAMINOPHEN
     Indication: PYREXIA
     Dates: start: 2019
  3. AMOXICILLIN. [Suspect]
     Active Substance: AMOXICILLIN
     Dates: start: 201909, end: 201909
  4. PREDNISONE. [Concomitant]
     Active Substance: PREDNISONE
     Indication: RHEUMATOID ARTHRITIS

REACTIONS (4)
  - Pneumonia [Unknown]
  - Back pain [Unknown]
  - Drug ineffective [Unknown]
  - Pyrexia [Recovering/Resolving]
